FAERS Safety Report 7060943-X (Version None)
Quarter: 2010Q4

REPORT INFORMATION
  Report Type: 
  Country: None (occurrence: None)
  Receive Date: 20101026
  Receipt Date: 20101025
  Transmission Date: 20110411
  Serious: Yes (Hospitalization)
  Sender: FDA-Public Use
  Company Number: CA-AMGEN INC.-KDC442154

PATIENT

DRUGS (7)
  1. PANITUMUMAB [Suspect]
     Indication: COLORECTAL CANCER
     Dosage: UNK UNK, Q2WK
     Route: 042
     Dates: start: 20100622
  2. OXALIPLATIN [Suspect]
     Dosage: UNK UNK, Q2WK
     Route: 042
     Dates: start: 20100622
  3. FLUOROURACIL [Suspect]
     Dosage: UNK UNK, Q2WK
     Route: 042
     Dates: start: 20100622
  4. FOLINIC ACID [Suspect]
     Dosage: UNK UNK, Q2WK
     Route: 042
     Dates: start: 20100622
  5. PANTOPRAZOLE [Concomitant]
     Dosage: UNK UNK, QD
     Route: 048
     Dates: start: 20100706
  6. NEUPOGEN [Concomitant]
     Dosage: UNK UNK, Q2WK
     Route: 058
     Dates: start: 20100806
  7. OLANZAPINE [Concomitant]
     Dosage: UNK UNK, QD
     Route: 048
     Dates: start: 20100827

REACTIONS (1)
  - GENERAL PHYSICAL HEALTH DETERIORATION [None]
